FAERS Safety Report 7328820-4 (Version None)
Quarter: 2011Q1

REPORT INFORMATION
  Report Type: 
  Country: None (occurrence: None)
  Receive Date: 20110303
  Receipt Date: 20110221
  Transmission Date: 20110831
  Serious: Yes (Death, Hospitalization, Other)
  Sender: FDA-Public Use
  Company Number: JP-ROCHE-758857

PATIENT
  Sex: Female
  Weight: 56 kg

DRUGS (10)
  1. XELODA [Suspect]
     Route: 048
     Dates: start: 20090814, end: 20090823
  2. TYKERB [Suspect]
     Indication: BREAST CANCER
     Route: 048
     Dates: start: 20090901
  3. XELODA [Suspect]
     Indication: BREAST CANCER
     Dosage: UNCERTAINTY
     Route: 048
     Dates: start: 20070201, end: 20071201
  4. 5-FU [Concomitant]
     Dosage: DOSAGE IS UNCERTAIN
     Route: 041
     Dates: start: 20080601, end: 20081101
  5. ENDOXAN [Concomitant]
     Dosage: DOSAGE IS UNCERTAIN
     Route: 065
     Dates: start: 20080601, end: 20081101
  6. TOPOTECAN [Concomitant]
     Dosage: DOSAGE IS UNCERTAIN.
     Route: 041
     Dates: start: 20090201, end: 20090716
  7. HERCEPTIN [Concomitant]
     Dosage: DOSAGE IS UNCERTAIN
     Route: 041
     Dates: start: 20070201, end: 20080201
  8. FEMARA [Concomitant]
     Route: 048
     Dates: start: 20080201, end: 20080601
  9. EPIRUBICIN HYDROCHLORIDE [Concomitant]
     Dosage: DOSAGE IS UNCERTAIN.
     Route: 041
     Dates: start: 20080601, end: 20081101
  10. TS-1 [Concomitant]
     Dosage: FORM; PERORAL AGENT, DOSAGE IS UNCERTAIN
     Route: 048
     Dates: start: 20081101, end: 20090701

REACTIONS (9)
  - DYSPNOEA [None]
  - DRUG ERUPTION [None]
  - MALIGNANT PLEURAL EFFUSION [None]
  - ACNE [None]
  - NEUTROPHIL COUNT [None]
  - DECREASED APPETITE [None]
  - WHITE BLOOD CELL COUNT [None]
  - DISEASE PROGRESSION [None]
  - PYREXIA [None]
